FAERS Safety Report 5189919-4 (Version None)
Quarter: 2006Q4

REPORT INFORMATION
  Report Type: 
  Country: None (occurrence: None)
  Receive Date: 20061215
  Receipt Date: 20061207
  Transmission Date: 20070319
  Serious: Yes (Death, Other)
  Sender: FDA-Public Use
  Company Number: 2006150498

PATIENT
  Sex: Female

DRUGS (1)
  1. ZOLOFT [Suspect]
     Indication: DEPRESSION
     Dosage: 50 MG (50  MG, DAILY: EVERY DAY), ORAL
     Route: 048
     Dates: start: 20061101, end: 20061101

REACTIONS (1)
  - PULMONARY OEDEMA [None]
